FAERS Safety Report 17459115 (Version 1)
Quarter: 2020Q1

REPORT INFORMATION
  Report Type: Spontaneous
  Country: JP (occurrence: JP)
  Receive Date: 20200225
  Receipt Date: 20200225
  Transmission Date: 20200409
  Serious: Yes (Hospitalization, Other)
  Sender: FDA-Public Use
  Company Number: JP-SUNOVION-2020SUN000665

PATIENT

DRUGS (1)
  1. LUNESTA [Suspect]
     Active Substance: ESZOPICLONE
     Dosage: DOSE UNKNOWN, 6 MG OR MORE
     Route: 048

REACTIONS (3)
  - Overdose [Unknown]
  - Alcohol interaction [Unknown]
  - Seizure [Unknown]

NARRATIVE: CASE EVENT DATE: 20200213
